FAERS Safety Report 9267175 (Version 3)
Quarter: 2013Q2

REPORT INFORMATION
  Report Type: Report from Study
  Country: DE (occurrence: DE)
  Receive Date: 20130502
  Receipt Date: 20130530
  Transmission Date: 20140414
  Serious: Yes (Other)
  Sender: FDA-Public Use
  Company Number: DE-ROCHE-1220707

PATIENT
  Age: 36 Year
  Sex: Female
  Weight: 65 kg

DRUGS (6)
  1. TOCILIZUMAB [Suspect]
     Indication: RHEUMATOID ARTHRITIS
     Route: 042
     Dates: start: 20130130
  2. TOCILIZUMAB [Suspect]
     Route: 065
     Dates: start: 20130228
  3. TOCILIZUMAB [Suspect]
     Route: 065
     Dates: start: 20130425
  4. DICLOFENAC [Concomitant]
     Route: 065
     Dates: start: 200402
  5. COLECALCIFEROL [Concomitant]
     Route: 065
     Dates: start: 200705
  6. L-THYROXIN [Concomitant]
     Indication: HYPERTHYROIDISM

REACTIONS (2)
  - Uterine haemorrhage [Recovered/Resolved]
  - Endometriosis [Not Recovered/Not Resolved]
